FAERS Safety Report 9451604 (Version 1)
Quarter: 2013Q3

REPORT INFORMATION
  Report Type: Spontaneous
  Country: US (occurrence: US)
  Receive Date: 20130811
  Receipt Date: 20130811
  Transmission Date: 20140515
  Serious: Yes (Death)
  Sender: FDA-Public Use
  Company Number: US-CUBIST PHARMACEUTICAL, INC.-2013CBST000338

PATIENT
  Sex: 0

DRUGS (12)
  1. CUBICIN [Suspect]
     Indication: ENTEROCOCCAL BACTERAEMIA
     Dosage: 460 MG, Q24H
     Route: 042
     Dates: start: 20131231
  2. CUBICIN [Suspect]
     Indication: DEVICE RELATED INFECTION
     Dosage: 10 MG/KG, Q24H
     Route: 042
     Dates: end: 20130218
  3. CUBICIN [Suspect]
     Indication: OFF LABEL USE
  4. GENTAMYCIN                         /00047101/ [Concomitant]
     Indication: BACTERAEMIA
     Dosage: UNK
  5. RIFAMPIN [Concomitant]
     Indication: BACTERAEMIA
  6. ALPRAZOLAM [Concomitant]
     Indication: ANXIETY
     Dosage: 0.25 MG, PRN
     Route: 048
     Dates: start: 20121205, end: 20130220
  7. AMIODARONE [Concomitant]
     Indication: ARRHYTHMIA
     Dosage: 400 MG, QD
     Route: 048
     Dates: start: 20121125, end: 20130220
  8. ASPIRIN [Concomitant]
     Indication: CARDIOMYOPATHY
     Dosage: 325 MG, QD
     Route: 048
     Dates: start: 20121125, end: 20130220
  9. FENTANYL [Concomitant]
     Indication: PAIN
     Dosage: 25 ??G, PRN
     Route: 042
     Dates: start: 20121125, end: 20130220
  10. GABAPENTIN [Concomitant]
     Indication: NEUROPATHY PERIPHERAL
     Dosage: 100 MG, QD
     Route: 048
     Dates: start: 20121125, end: 20130220
  11. OXYCODONE [Concomitant]
     Indication: PAIN
     Dosage: 5 MG, PRN
     Route: 048
     Dates: start: 20121125, end: 20130220
  12. WARFARIN [Concomitant]
     Indication: ANTICOAGULANT THERAPY
     Dosage: 2.5 MG, QD
     Route: 048
     Dates: start: 20120125, end: 20130220

REACTIONS (2)
  - Death [Fatal]
  - Antimicrobial susceptibility test resistant [Not Recovered/Not Resolved]
